FAERS Safety Report 8508868-4 (Version None)
Quarter: 2012Q3

REPORT INFORMATION
  Report Type: 
  Country: None (occurrence: None)
  Receive Date: 20120703
  Receipt Date: 20120612
  Transmission Date: 20120928
  Serious: Yes (Other)
  Sender: FDA-Public Use
  Company Number: FK201201691

PATIENT
  Age: 75 Year
  Sex: Male

DRUGS (5)
  1. FLUOROURACIL [Suspect]
     Indication: PENIS CARCINOMA
     Dosage: 1000 MG/M2, FOR 5 DAYS, INTRAVENOUS (NOT OTHERWISE SPECIFIED)
     Route: 042
     Dates: start: 20110301
  2. CISPLATIN [Suspect]
     Indication: PENIS CARCINOMA
     Dosage: 100 MG/M2, ON DAY 1
     Dates: start: 20110301
  3. CETUXIMAB (CETUXIMAB) (CETUXIMAB) [Suspect]
     Indication: DISEASE PROGRESSION
     Dosage: 400 MG/M2, ON DAY 1 EVERY 21 DAYS, 250 MG/M2, ON DAY 8, EVERY 21 DAYS
     Dates: start: 20110901
  4. CETUXIMAB (CETUXIMAB) (CETUXIMAB) [Suspect]
     Indication: DISEASE PROGRESSION
     Dosage: 400 MG/M2, ON DAY 1 EVERY 21 DAYS, 250 MG/M2, ON DAY 8, EVERY 21 DAYS
     Dates: start: 20110901
  5. DOCETAXEL [Suspect]
     Indication: DISEASE PROGRESSION
     Dosage: 75 MG/M2
     Dates: start: 20110901

REACTIONS (5)
  - RENAL INJURY [None]
  - HYPERCREATININAEMIA [None]
  - NEOPLASM PROGRESSION [None]
  - MUCOSAL INFLAMMATION [None]
  - SKIN TOXICITY [None]
